FAERS Safety Report 10305677 (Version 1)
Quarter: 2014Q3

REPORT INFORMATION
  Report Type: Spontaneous
  Country: US (occurrence: US)
  Receive Date: 20140715
  Receipt Date: 20140715
  Transmission Date: 20150326
  Serious: No
  Sender: FDA-Public Use
  Company Number: US-GLAXOSMITHKLINE-A1054248A

PATIENT
  Age: 29 Year
  Sex: Male

DRUGS (1)
  1. NICORETTE [Suspect]
     Active Substance: NICOTINE
     Indication: EX-TOBACCO USER
     Dates: start: 20131218, end: 20131219

REACTIONS (8)
  - Feeling abnormal [Unknown]
  - Oral discomfort [Unknown]
  - Tremor [Unknown]
  - Pyrexia [Recovered/Resolved]
  - Nausea [Unknown]
  - Dry throat [Unknown]
  - Abdominal pain upper [Unknown]
  - Headache [Unknown]
